FAERS Safety Report 18494999 (Version 3)
Quarter: 2021Q1

REPORT INFORMATION
  Report Type: Spontaneous
  Country: US (occurrence: US)
  Receive Date: 20201112
  Receipt Date: 20210330
  Transmission Date: 20210419
  Serious: No
  Sender: FDA-Public Use
  Company Number: US-PFIZER INC-2020429046

PATIENT
  Age: 6 Year
  Sex: Female

DRUGS (1)
  1. GENOTROPIN [Suspect]
     Active Substance: SOMATROPIN
     Indication: GROWTH DISORDER
     Dosage: 0.6 MG INJECTION AT NIGHT FOR SIX DAYS DURING WEEK

REACTIONS (3)
  - Drug dose omission by device [Unknown]
  - Overweight [Unknown]
  - Device information output issue [Unknown]
